FAERS Safety Report 8884261 (Version 1)
Quarter: 2012Q4

REPORT INFORMATION
  Report Type: 
  Country: US (occurrence: US)
  Receive Date: 20121102
  Receipt Date: 20121102
  Transmission Date: 20130627
  Serious: No
  Sender: FDA-Public Use
  Company Number: US-ASTRAZENECA-2012SE11340

PATIENT
  Age: 63 Year
  Sex: Male
  Weight: 86.2 kg

DRUGS (2)
  1. CRESTOR [Suspect]
     Indication: BLOOD CHOLESTEROL
     Route: 048
  2. CRESTOR [Suspect]
     Indication: BLOOD CHOLESTEROL
     Dosage: 10 MG, ONE IN THE MORNING AND ONE IN THE EVENING
     Route: 048

REACTIONS (3)
  - Blood test abnormal [Unknown]
  - Myalgia [Unknown]
  - Inappropriate schedule of drug administration [Unknown]
